FAERS Safety Report 23469338 (Version 1)
Quarter: 2024Q1

REPORT INFORMATION
  Report Type: Report from Study
  Country: PE (occurrence: PE)
  Receive Date: 20240202
  Receipt Date: 20240202
  Transmission Date: 20240410
  Serious: Yes (Other)
  Sender: FDA-Public Use
  Company Number: PE-AMGEN-PERSL2024018119

PATIENT
  Age: 49 Year
  Sex: Male

DRUGS (1)
  1. NPLATE [Suspect]
     Active Substance: ROMIPLOSTIM
     Indication: Immune thrombocytopenia
     Dosage: 476 MICROGRAM, QWK
     Route: 058
     Dates: start: 20231222

REACTIONS (1)
  - Thrombocytosis [Not Recovered/Not Resolved]
